FAERS Safety Report 20960321 (Version 2)
Quarter: 2022Q3

REPORT INFORMATION
  Report Type: Report from Study
  Country: None (occurrence: CN)
  Receive Date: 20220615
  Receipt Date: 20220719
  Transmission Date: 20221027
  Serious: Yes (Hospitalization)
  Sender: FDA-Public Use
  Company Number: CN-Jiangsu Hengrui Medicine Co., Ltd.-2129887

PATIENT
  Age: 54 Year
  Sex: Male
  Weight: 61.9 kg

DRUGS (9)
  1. OXALIPLATIN [Suspect]
     Active Substance: OXALIPLATIN
     Indication: Colorectal cancer metastatic
     Route: 041
     Dates: start: 20211124, end: 20220421
  2. CAPECITABINE [Suspect]
     Active Substance: CAPECITABINE
     Route: 048
     Dates: start: 20211124
  3. SERPLULIMAB [Suspect]
     Active Substance: SERPLULIMAB
     Route: 041
     Dates: start: 20211124, end: 20220421
  4. AVASTIN [Suspect]
     Active Substance: BEVACIZUMAB
     Route: 041
     Dates: start: 20211124, end: 20220421
  5. Ilaprazole Sodium for Injection [Concomitant]
     Route: 041
     Dates: start: 20220421, end: 20220421
  6. Cimetidine Injection [Concomitant]
     Route: 041
     Dates: start: 20220421, end: 20220421
  7. DIPHENHYDRAMINE HYDROCHLORIDE [Concomitant]
     Active Substance: DIPHENHYDRAMINE HYDROCHLORIDE
     Route: 030
     Dates: start: 20220421, end: 20220421
  8. Dolasetron Mesilate Injection [Concomitant]
     Route: 041
     Dates: start: 20220421, end: 20220421
  9. HLX-04 [Suspect]
     Active Substance: HLX-04

REACTIONS (1)
  - Infusion related reaction [Recovered/Resolved]

NARRATIVE: CASE EVENT DATE: 20220421
